FAERS Safety Report 10406972 (Version 1)
Quarter: 2014Q3

REPORT INFORMATION
  Report Type: Spontaneous
  Country: US (occurrence: None)
  Receive Date: 20140822
  Receipt Date: 20140822
  Transmission Date: 20150326
  Serious: Yes (Other)
  Sender: FDA-Public Use
  Company Number: None

PATIENT
  Age: 71 Year
  Sex: Female
  Weight: 84.37 kg

DRUGS (3)
  1. VITAMIN D3 [Concomitant]
     Active Substance: CHOLECALCIFEROL
  2. LOSARTAN + HYDROCHLOROTHIAZIDE [Suspect]
     Active Substance: HYDROCHLOROTHIAZIDE\LOSARTAN
     Indication: HYPERTENSION
     Dosage: ONE ONCE A DAY MORNING TIME BY MOUTH EVERY DAY 1 PILL
     Route: 048
     Dates: start: 201206
  3. VITAMIN B12 [Suspect]
     Active Substance: CYANOCOBALAMIN

REACTIONS (5)
  - Bone pain [None]
  - Urine analysis abnormal [None]
  - Depression [None]
  - Malaise [None]
  - Facial pain [None]

NARRATIVE: CASE EVENT DATE: 201206
